FAERS Safety Report 24329953 (Version 3)
Quarter: 2024Q4

REPORT INFORMATION
  Report Type: Spontaneous
  Country: JP (occurrence: JP)
  Receive Date: 20240917
  Receipt Date: 20241209
  Transmission Date: 20250115
  Serious: Yes (Hospitalization)
  Sender: GALDERMA
  Company Number: JP-GALDERMA-JP2024013898

PATIENT

DRUGS (1)
  1. NEMOLIZUMAB [Suspect]
     Active Substance: NEMOLIZUMAB
     Indication: Neurodermatitis
     Dosage: UNK DOSAGE FORM
     Route: 058
     Dates: start: 20240802, end: 20240802

REACTIONS (1)
  - Rectal neoplasm [Unknown]

NARRATIVE: CASE EVENT DATE: 20240806
